FAERS Safety Report 17204298 (Version 3)
Quarter: 2020Q4

REPORT INFORMATION
  Report Type: Report from Study
  Country: US (occurrence: US)
  Receive Date: 20191226
  Receipt Date: 20201209
  Transmission Date: 20210113
  Serious: Yes (Other)
  Sender: FDA-Public Use
  Company Number: US-PFIZER INC-2019552126

PATIENT
  Age: 5 Month
  Sex: Male

DRUGS (1)
  1. PROPANOLOL HCL [Suspect]
     Active Substance: PROPRANOLOL HYDROCHLORIDE
     Indication: INFANTILE HAEMANGIOMA
     Dosage: 1-2 MG/KG/DAY
     Route: 048

REACTIONS (3)
  - Bradycardia [Unknown]
  - Drug intolerance [Unknown]
  - Drug ineffective [Unknown]
